FAERS Safety Report 7018747-X (Version None)
Quarter: 2010Q3

REPORT INFORMATION
  Report Type: 
  Country: None (occurrence: None)
  Receive Date: 20100928
  Receipt Date: 20100917
  Transmission Date: 20110219
  Serious: Yes (Other)
  Sender: FDA-Public Use
  Company Number: US-JNJCH-2010020366

PATIENT
  Age: 53 Year
  Sex: Male
  Weight: 93 kg

DRUGS (1)
  1. LUBRIDERM DAILY MOISTURE [Suspect]
     Indication: DRY SKIN
     Dosage: TEXT:^QUARTER SIZE AMOUNT^ - UNSPECIFIED
     Route: 061
     Dates: start: 20100131, end: 20100902

REACTIONS (2)
  - CHEMICAL INJURY [None]
  - PHYSICAL PRODUCT LABEL ISSUE [None]
